FAERS Safety Report 5101939-4 (Version None)
Quarter: 2006Q3

REPORT INFORMATION
  Report Type: 
  Country: None (occurrence: None)
  Receive Date: 20060907
  Receipt Date: 20060825
  Transmission Date: 20061208
  Serious: Yes (Other)
  Sender: FDA-Public Use
  Company Number: 2006105648

PATIENT
  Age: 18 Year
  Sex: Female

DRUGS (2)
  1. CHANTIX [Suspect]
     Indication: SMOKING CESSATION THERAPY
     Dosage: 0.5 MG (0.5 MG, 1 IN 1 D)
     Dates: start: 20060801, end: 20060826
  2. XANAX [Suspect]
     Indication: DRUG USE FOR UNKNOWN INDICATION
     Dates: start: 20060801

REACTIONS (9)
  - ANXIETY [None]
  - DRUG INEFFECTIVE [None]
  - DYSPNOEA [None]
  - MALAISE [None]
  - NAUSEA [None]
  - PANIC ATTACK [None]
  - PYREXIA [None]
  - VIRAL INFECTION [None]
  - VOMITING [None]
